FAERS Safety Report 13621232 (Version 1)
Quarter: 2017Q2

REPORT INFORMATION
  Report Type: Spontaneous
  Country: DE (occurrence: DE)
  Receive Date: 20170607
  Receipt Date: 20170607
  Transmission Date: 20170830
  Serious: Yes (Hospitalization)
  Sender: FDA-Public Use
  Company Number: DE-ACCORD-052355

PATIENT
  Age: 48 Year
  Sex: Female

DRUGS (7)
  1. SERTRALINE [Suspect]
     Active Substance: SERTRALINE HYDROCHLORIDE
     Indication: PRODUCT USED FOR UNKNOWN INDICATION
     Dosage: 50 MG DAILY FROM 28-OCT-2016 TO 30-OCT-2016, THEN 100 MG DAILY FROM 31-OCT-2016 TO 11-NOV-2016
     Route: 048
     Dates: start: 20161028, end: 20161111
  2. PANTOZOL [Concomitant]
     Active Substance: PANTOPRAZOLE SODIUM
     Route: 048
     Dates: start: 20160922
  3. SAROTEN [Suspect]
     Active Substance: AMITRIPTYLINE
     Indication: PRODUCT USED FOR UNKNOWN INDICATION
     Dosage: 25 MG (20-OCT-2016 TO 27-OCT-2016), 50 MG (28-OCT-2016 TO 03-NOV-2016)
     Route: 048
     Dates: start: 20161020, end: 20161108
  4. AMITRIPTYLINE HYDROCHLORIDE. [Suspect]
     Active Substance: AMITRIPTYLINE HYDROCHLORIDE
     Route: 048
     Dates: start: 20161028, end: 20161103
  5. AMITRIPTYLINE HYDROCHLORIDE. [Suspect]
     Active Substance: AMITRIPTYLINE HYDROCHLORIDE
     Route: 048
     Dates: start: 20161104, end: 20161108
  6. CLOZAPINE. [Suspect]
     Active Substance: CLOZAPINE
     Indication: PRODUCT USED FOR UNKNOWN INDICATION
     Dosage: 25-400MG (25-AUG TO 22-SEP-2016),425MG(23-SEP TO 30-SEP-2016),500MG(01-OCT TO 29-NOV-2016),
     Route: 048
     Dates: start: 20160825, end: 20161206
  7. SAROTEN RETARD [Suspect]
     Active Substance: AMITRIPTYLINE
     Indication: PRODUCT USED FOR UNKNOWN INDICATION
     Route: 048
     Dates: start: 20161109

REACTIONS (3)
  - Myoclonus [Recovered/Resolved]
  - Salivary hypersecretion [Recovered/Resolved]
  - Dysphemia [Recovered/Resolved]

NARRATIVE: CASE EVENT DATE: 20160922
